FAERS Safety Report 16658228 (Version 2)
Quarter: 2021Q4

REPORT INFORMATION
  Report Type: Report from Study
  Country: DK (occurrence: DK)
  Receive Date: 20190801
  Receipt Date: 20211021
  Transmission Date: 20220303
  Serious: Yes (Other)
  Sender: FDA-Public Use
  Company Number: DK-UCBSA-081098

PATIENT
  Sex: Female

DRUGS (1)
  1. LEVETIRACETAM [Interacting]
     Active Substance: LEVETIRACETAM
     Indication: Epilepsy
     Dosage: 1500 UNKNOWN DAILY; DAILY DOSE : 1500 MG

REACTIONS (3)
  - Abortion spontaneous [Unknown]
  - Maternal exposure during pregnancy [Recovered/Resolved]
  - Drug interaction [Unknown]
